FAERS Safety Report 9573552 (Version 3)
Quarter: 2015Q1

REPORT INFORMATION
  Report Type: Spontaneous
  Country: US (occurrence: US)
  Receive Date: 20131001
  Receipt Date: 20150216
  Transmission Date: 20150721
  Serious: Yes (Other)
  Sender: FDA-Public Use
  Company Number: US-PFIZER INC-2013276722

PATIENT
  Age: 68 Year
  Sex: Female

DRUGS (1)
  1. INLYTA [Suspect]
     Active Substance: AXITINIB
     Indication: RENAL CANCER METASTATIC
     Dosage: 5 MG, 2X/DAY
     Route: 048
     Dates: start: 20130828

REACTIONS (4)
  - Disease progression [Unknown]
  - Renal cancer metastatic [Unknown]
  - Posterior reversible encephalopathy syndrome [Recovering/Resolving]
  - Vision blurred [Recovering/Resolving]
